FAERS Safety Report 9258939 (Version 5)
Quarter: 2013Q4

REPORT INFORMATION
  Report Type: Spontaneous
  Country: US (occurrence: US)
  Receive Date: 20130426
  Receipt Date: 20131017
  Transmission Date: 20140711
  Serious: No
  Sender: FDA-Public Use
  Company Number: US-009507513-1304USA015711

PATIENT
  Sex: Male

DRUGS (6)
  1. PEGINTRON [Suspect]
     Indication: HEPATITIS C
     Dosage: FORMULATION: REDIPEN
     Route: 058
     Dates: start: 20110101, end: 20110901
  2. PEGINTRON [Suspect]
     Dosage: REDIPEN
     Route: 058
     Dates: start: 20130426
  3. REBETOL [Suspect]
     Indication: HEPATITIS C
     Dosage: UNK
     Route: 048
     Dates: start: 20120101, end: 20120901
  4. REBETOL [Suspect]
     Dosage: UNK
     Route: 048
     Dates: start: 20130426
  5. REBETOL [Suspect]
     Dosage: UNK
  6. VICTRELIS [Suspect]
     Indication: HEPATITIS C
     Dosage: UNK
     Dates: start: 20130524

REACTIONS (16)
  - Nervousness [Unknown]
  - Hyperglycaemia [Unknown]
  - Mental disorder [Unknown]
  - Dysgeusia [Recovering/Resolving]
  - Depression [Unknown]
  - Anxiety [Unknown]
  - Therapeutic response decreased [Unknown]
  - Drug ineffective [Unknown]
  - Depression [Unknown]
  - Anxiety [Unknown]
  - Decreased appetite [Unknown]
  - Depression [Unknown]
  - Nausea [Unknown]
  - Decreased appetite [Unknown]
  - Blood glucose increased [Unknown]
  - Decreased appetite [Unknown]
